FAERS Safety Report 14634313 (Version 2)
Quarter: 2018Q1

REPORT INFORMATION
  Report Type: Report from Study
  Country: BR (occurrence: BR)
  Receive Date: 20180314
  Receipt Date: 20180329
  Transmission Date: 20180509
  Serious: Yes (Other)
  Sender: FDA-Public Use
  Company Number: BR-ROCHE-1389545

PATIENT
  Age: 32 Year
  Sex: Female
  Weight: 64 kg

DRUGS (2)
  1. AZATHIOPRINE. [Concomitant]
     Active Substance: AZATHIOPRINE
     Route: 065
  2. MABTHERA [Suspect]
     Active Substance: RITUXIMAB
     Indication: RHEUMATOID ARTHRITIS
     Dosage: MOST RECENT DOSE: 31/AUG/2017,?SUBSEQUENTLY RECEIVED ON: 22/AUG/2013 AND 06/APR/2015
     Route: 042
     Dates: start: 20111107

REACTIONS (7)
  - Pharyngeal inflammation [Unknown]
  - Influenza [Recovering/Resolving]
  - Immunodeficiency [Unknown]
  - Uterine haemorrhage [Recovering/Resolving]
  - Herpes zoster [Recovered/Resolved]
  - Urinary tract infection [Not Recovered/Not Resolved]
  - Lymphocyte count decreased [Not Recovered/Not Resolved]

NARRATIVE: CASE EVENT DATE: 20150406
